FAERS Safety Report 9721471 (Version 1)
Quarter: 2013Q4

REPORT INFORMATION
  Report Type: Spontaneous
  Country: US (occurrence: US)
  Receive Date: 20131129
  Receipt Date: 20131129
  Transmission Date: 20140711
  Serious: Yes (Hospitalization, Other)
  Sender: FDA-Public Use
  Company Number: US-ASTRAZENECA-2013SE85772

PATIENT
  Age: 82 Year
  Sex: Female

DRUGS (3)
  1. LISINOPRIL [Suspect]
     Route: 048
  2. DIOVAN [Concomitant]
  3. EXFORGE [Concomitant]

REACTIONS (4)
  - Throat tightness [Unknown]
  - Food allergy [Unknown]
  - Drug hypersensitivity [Unknown]
  - Swollen tongue [Unknown]
